FAERS Safety Report 4957091-9 (Version None)
Quarter: 2006Q1

REPORT INFORMATION
  Report Type: 
  Country: None (occurrence: None)
  Receive Date: 20060323
  Receipt Date: 20060315
  Transmission Date: 20060701
  Serious: Yes (Life-Threatening, Other)
  Sender: FDA-Public Use
  Company Number: 2006036498

PATIENT
  Sex: Male

DRUGS (3)
  1. XANAX [Suspect]
     Indication: ILL-DEFINED DISORDER
     Dosage: SUBLINGUAL
     Route: 060
  2. OMEGA 3-6-9 (OMEGA 6 TRIGLYCERIDES, OMEGA 9 TRIGLYCERIDES, OMEGA-3 TRI [Concomitant]
  3. SAW PALMETTO (SAW PALMETTO) [Concomitant]

REACTIONS (7)
  - CEREBRAL DISORDER [None]
  - DRUG INEFFECTIVE [None]
  - INCORRECT ROUTE OF DRUG ADMINISTRATION [None]
  - ORAL INTAKE REDUCED [None]
  - PHARMACEUTICAL PRODUCT COMPLAINT [None]
  - THERAPEUTIC RESPONSE UNEXPECTED WITH DRUG SUBSTITUTION [None]
  - UNEVALUABLE EVENT [None]
